FAERS Safety Report 12317047 (Version 1)
Quarter: 2016Q2

REPORT INFORMATION
  Report Type: Spontaneous
  Country: US (occurrence: None)
  Receive Date: 20160428
  Receipt Date: 20160428
  Transmission Date: 20160815
  Serious: Yes (Other)
  Sender: FDA-Public Use
  Company Number: None

PATIENT
  Age: 72 Year
  Sex: Female
  Weight: 73.48 kg

DRUGS (9)
  1. PANTOPRAZOLE [Concomitant]
     Active Substance: PANTOPRAZOLE SODIUM
  2. ASPIRIN. [Concomitant]
     Active Substance: ASPIRIN
  3. CHLORTHALIDONE. [Concomitant]
     Active Substance: CHLORTHALIDONE
  4. VITAMIN C [Concomitant]
     Active Substance: ASCORBIC ACID
  5. MULTI VIT. [Concomitant]
  6. GABAPENTIN. [Concomitant]
     Active Substance: GABAPENTIN
  7. NITROFUR MAC 100 MG CAP, 100 MG [Suspect]
     Active Substance: NITROFURANTOIN
     Indication: URINARY TRACT INFECTION BACTERIAL
     Route: 048
     Dates: start: 20160426, end: 20160427
  8. LEVOTHYROXIN [Concomitant]
     Active Substance: LEVOTHYROXINE
  9. VIT. D [Concomitant]

REACTIONS (4)
  - Burning sensation [None]
  - Erythema [None]
  - Eye irritation [None]
  - Ocular hyperaemia [None]

NARRATIVE: CASE EVENT DATE: 20160427
